FAERS Safety Report 12954773 (Version 2)
Quarter: 2016Q4

REPORT INFORMATION
  Report Type: Spontaneous
  Country: US (occurrence: US)
  Receive Date: 20161118
  Receipt Date: 20161125
  Transmission Date: 20170207
  Serious: Yes (Life-Threatening, Other)
  Sender: FDA-Public Use
  Company Number: US-GLENMARK PHARMACEUTICALS INC, USA.-2016GMK024999

PATIENT
  Age: 61 Year
  Sex: Female

DRUGS (4)
  1. ANTIBIOTIC                         /00011701/ [Concomitant]
     Active Substance: UNSPECIFIED INGREDIENT
     Indication: HELICOBACTER INFECTION
     Dosage: UNK
     Route: 065
  2. CALCIUM CARBONATE. [Interacting]
     Active Substance: CALCIUM CARBONATE
     Indication: MINERAL SUPPLEMENTATION
     Dosage: 1200 MG DAILY WITH MEALS SINCE SURGERY
     Route: 065
  3. MAGNESIUM CITRATE. [Concomitant]
     Active Substance: MAGNESIUM CITRATE
     Indication: PRODUCT USED FOR UNKNOWN INDICATION
     Dosage: 200 MG, BID
     Route: 065
  4. OMEPRAZOLE. [Suspect]
     Active Substance: OMEPRAZOLE
     Indication: HELICOBACTER GASTRITIS
     Dosage: UNK
     Route: 065

REACTIONS (4)
  - Drug interaction [Unknown]
  - Tetany [Unknown]
  - Hypocalcaemia [Unknown]
  - Electrocardiogram QT prolonged [Unknown]
